FAERS Safety Report 6993059-9 (Version None)
Quarter: 2010Q3

REPORT INFORMATION
  Report Type: 
  Country: None (occurrence: None)
  Receive Date: 20100917
  Receipt Date: 20100111
  Transmission Date: 20110219
  Serious: No
  Sender: FDA-Public Use
  Company Number: US-ASTRAZENECA-2009SE23741

PATIENT
  Age: 38 Year
  Sex: Female
  Weight: 135.6 kg

DRUGS (5)
  1. SEROQUEL [Suspect]
     Indication: BIPOLAR DISORDER
     Dosage: 100- 200 MG
     Route: 048
     Dates: start: 20020101
  2. ABILIFY [Concomitant]
  3. ATIVAN [Concomitant]
  4. NORTRIPTYLINE HCL [Concomitant]
  5. GABAPENTIN [Concomitant]

REACTIONS (4)
  - BACK INJURY [None]
  - OBESITY [None]
  - TYPE 2 DIABETES MELLITUS [None]
  - WEIGHT INCREASED [None]
